FAERS Safety Report 26194418 (Version 1)
Quarter: 2025Q4

REPORT INFORMATION
  Report Type: Spontaneous
  Country: US (occurrence: US)
  Receive Date: 20251224
  Receipt Date: 20251224
  Transmission Date: 20260119
  Serious: Yes (Life-Threatening, Hospitalization, Other)
  Sender: GLENMARK
  Company Number: US-MLMSERVICE-20251204-PI739923-00083-1

PATIENT
  Age: 93 Year
  Sex: Female

DRUGS (3)
  1. CARVEDILOL [Suspect]
     Active Substance: CARVEDILOL
     Indication: Product used for unknown indication
     Dosage: 25 MILLIGRAM (IT WAS DISCOVERED SHE HAD BEEN TAKING TWO DIFFERENT DOSES OF CARVEDILOL, A CURRENT PRE
     Route: 065
  2. CARVEDILOL [Suspect]
     Active Substance: CARVEDILOL
     Dosage: 3.125 MILLIGRAM
     Route: 065
  3. AMIODARONE [Concomitant]
     Active Substance: AMIODARONE
     Indication: Product used for unknown indication
     Dosage: UNK
     Route: 065

REACTIONS (5)
  - BRASH syndrome [Recovering/Resolving]
  - Lactic acidosis [Recovered/Resolved]
  - Hypothermia [Unknown]
  - Hypotension [Unknown]
  - Wrong dose [Unknown]
